FAERS Safety Report 19591423 (Version 1)
Quarter: 2021Q3

REPORT INFORMATION
  Report Type: Report from Study
  Country: NO (occurrence: NO)
  Receive Date: 20210721
  Receipt Date: 20210721
  Transmission Date: 20211014
  Serious: Yes (Other)
  Sender: FDA-Public Use
  Company Number: NO-GILEAD-2021-0541310

PATIENT

DRUGS (3)
  1. REMDESIVIR. [Suspect]
     Active Substance: REMDESIVIR
     Dosage: 100 MG, QD
     Route: 042
  2. HCQ [Concomitant]
     Active Substance: HYDROXYCHLOROQUINE SULFATE
  3. REMDESIVIR. [Suspect]
     Active Substance: REMDESIVIR
     Indication: COVID-19
     Dosage: 200 MG ON DAY 1
     Route: 042

REACTIONS (1)
  - Diarrhoea haemorrhagic [Unknown]
